FAERS Safety Report 9742331 (Version 1)
Quarter: 2013Q4

REPORT INFORMATION
  Report Type: Spontaneous
  Country: US (occurrence: US)
  Receive Date: 20131210
  Receipt Date: 20131210
  Transmission Date: 20140711
  Serious: No
  Sender: FDA-Public Use
  Company Number: US-BAYER-2013-150455

PATIENT
  Age: 79 Year
  Sex: Female
  Weight: 53.52 kg

DRUGS (2)
  1. ALEVE CAPLET [Suspect]
     Indication: ARTHRITIS
     Dosage: 1 DF, PRN
     Route: 048
  2. ANABOLIC STEROIDS [Concomitant]

REACTIONS (1)
  - Rash [Recovered/Resolved]
